FAERS Safety Report 9517810 (Version 1)
Quarter: 2013Q3

REPORT INFORMATION
  Report Type: Spontaneous
  Country: US (occurrence: US)
  Receive Date: 20130912
  Receipt Date: 20130912
  Transmission Date: 20140515
  Serious: Yes (Death, Hospitalization, Other)
  Sender: FDA-Public Use
  Company Number: US-JNJFOC-20130905635

PATIENT
  Sex: Female

DRUGS (3)
  1. TYLENOL ANALGESIC UNKNOWN [Suspect]
     Route: 065
  2. TYLENOL ANALGESIC UNKNOWN [Suspect]
     Indication: BACK PAIN
     Route: 065
  3. LORTAB [Suspect]
     Indication: BACK PAIN
     Route: 065

REACTIONS (7)
  - Brain death [Fatal]
  - Leukocytosis [Unknown]
  - Thrombocytosis [Unknown]
  - Tachycardia [Unknown]
  - Normochromic normocytic anaemia [Unknown]
  - Hepatic failure [Unknown]
  - Renal failure [Unknown]
